FAERS Safety Report 23660425 (Version 2)
Quarter: 2024Q2

REPORT INFORMATION
  Report Type: Spontaneous
  Country: US (occurrence: US)
  Receive Date: 20240321
  Receipt Date: 20240401
  Transmission Date: 20240715
  Serious: Yes (Hospitalization)
  Sender: FDA-Public Use
  Company Number: US-BRISTOL-MYERS SQUIBB COMPANY-2024-044872

PATIENT
  Age: 78 Year
  Sex: Male

DRUGS (21)
  1. REVLIMID [Suspect]
     Active Substance: LENALIDOMIDE
     Indication: Plasma cell myeloma
     Dosage: DAILY
     Route: 048
     Dates: start: 20240125
  2. ACYCLOVIR [Concomitant]
     Active Substance: ACYCLOVIR
     Indication: Product used for unknown indication
     Dosage: TAKE 1 TABLET BY MOUTH TWICE DAILY?LAST SOLD DATE: 15-FEB-2024
     Route: 048
  3. ACYCLOVIR [Concomitant]
     Active Substance: ACYCLOVIR
  4. AMOXICILLIN [Concomitant]
     Active Substance: AMOXICILLIN
     Indication: Product used for unknown indication
     Dosage: TAKE 2 TABLETS BY MOUTH NOW, THEN TAKE 1 TABLET BY MOUTH EVERY 6 HOURS UNTIL GONE?LAST SOLD DATE: 26
     Route: 048
  5. AMOXICILLIN [Concomitant]
     Active Substance: AMOXICILLIN
     Dosage: TAKE 1 TABLET BY MOUTH THREE TIMES DAILY UNTIL GONE?LAST SOLD DATE: 22-SEP-2022
     Route: 048
  6. AMOXICILLIN [Concomitant]
     Active Substance: AMOXICILLIN
     Dosage: TAKE 2 TABLETS BY MOUTH NOW, THEN TAKE 1 TABLET BY MOUTH EVERY 6 HOURS UNTIL GONE?LAST SOLD DATE: 26
     Route: 048
  7. CHLORHEXIDINE [Concomitant]
     Active Substance: CHLORHEXIDINE\CHLORHEXIDINE GLUCONATE
     Indication: Product used for unknown indication
     Dosage: CHLORHEXIDINE 0.12% ORAL RINS 473ML; RINSE MOUTH WITH 15ML FOR 30 SECONDS IN THE MORNING AND EVENING
     Route: 048
  8. CHLORHEXIDINE [Concomitant]
     Active Substance: CHLORHEXIDINE\CHLORHEXIDINE GLUCONATE
     Dosage: CHLORHEXIDINE 0.12% ORAL RINS 473ML; RINSE 15ML (1CAPFUL) BY MOUTH FOR 30 SECONDS IN THE AM AND PM A
     Route: 048
  9. CYCLOBENZAPRINE [Concomitant]
     Active Substance: CYCLOBENZAPRINE
     Indication: Product used for unknown indication
     Dosage: TAKE 1 TABLET BY MOUTH THREE TIMES DAILY AS NEEDED?LAST SOLD DATE: 18-JAN-2024
     Route: 048
  10. DRONABINOL [Concomitant]
     Active Substance: DRONABINOL
     Indication: Product used for unknown indication
     Dosage: TAKE 1 CAPSULE BY MOUTH TWICE DAILY?LAST SOLD DATE: 30-AUG-2022
     Route: 048
  11. FLUAD QUAD [Concomitant]
     Indication: Product used for unknown indication
     Dosage: FLUAD**65+QUAD OF 2022-23 INJ 0.5ML; ?ADMINISTER 0.5ML IN THE MUSCLE AS DIRECTED TODAY?LAST SOLD DAT
     Route: 030
  12. FLUZONE HIGH-DOSE NOS [Concomitant]
     Active Substance: INFLUENZA A VIRUS A/CALIFORNIA/7/2009 X-179A (H1N1) ANTIGEN (FORMALDEHYDE INACTIVATED)\INFLUENZA A V
     Indication: Product used for unknown indication
     Dosage: FLUZONE HD 65+ PF INJ 2023-24 0.7ML; ?ADMINISTER 0.7ML IN THE MUSCLE AS DIRECTED TODAY?LAST SOLD DAT
     Route: 030
  13. LEVETIRACETAM [Concomitant]
     Active Substance: LEVETIRACETAM
     Indication: Product used for unknown indication
  14. LEVETIRACETAM [Concomitant]
     Active Substance: LEVETIRACETAM
     Dosage: TAKE 1 TABLET BY MOUTH TWICE DAILY?LAST SOLD DATE: 26-FEB-2024
     Route: 048
  15. PREDNISONE [Concomitant]
     Active Substance: PREDNISONE
     Indication: Product used for unknown indication
     Dosage: TAKE 2 TABLETS (20MG) BY MOUTH DAILY?LAST SOLD DATE: 30-AUG-2022
     Route: 048
  16. PREDNISONE [Concomitant]
     Active Substance: PREDNISONE
     Dosage: TAKE 1 TABLET BY MOUTH DAILY?LAST SOLD DATE: 01-AUG-2023
     Route: 048
  17. VITAMINS NOS [Concomitant]
     Active Substance: VITAMINS
     Indication: Product used for unknown indication
     Dosage: MULTIVITAMIN ADULT 50+ TABLETS
  18. AMIODARONE [Concomitant]
     Active Substance: AMIODARONE
  19. ATORVASTATIN [Concomitant]
     Active Substance: ATORVASTATIN
  20. METOPROLOL SUCCINATE [Concomitant]
     Active Substance: METOPROLOL SUCCINATE
  21. PANTOPRAZOLE [Concomitant]
     Active Substance: PANTOPRAZOLE

REACTIONS (1)
  - Cardiovascular disorder [Unknown]

NARRATIVE: CASE EVENT DATE: 20240301
